FAERS Safety Report 6653133-3 (Version None)
Quarter: 2010Q1

REPORT INFORMATION
  Report Type: 
  Country: None (occurrence: None)
  Receive Date: 20100326
  Receipt Date: 20100323
  Transmission Date: 20100710
  Serious: Yes (Death)
  Sender: FDA-Public Use
  Company Number: PHHY2009CA50722

PATIENT
  Sex: Male

DRUGS (1)
  1. EXJADE [Suspect]
     Indication: MYELODYSPLASTIC SYNDROME
     Dosage: 1750 MG, QD
     Route: 048
     Dates: start: 20081101

REACTIONS (6)
  - COUGH [None]
  - DEATH [None]
  - DRY SKIN [None]
  - PRURITUS [None]
  - PYREXIA [None]
  - SERUM FERRITIN INCREASED [None]
